FAERS Safety Report 5879833-0 (Version None)
Quarter: 2008Q3

REPORT INFORMATION
  Report Type: 
  Country: None (occurrence: None)
  Receive Date: 20080911
  Receipt Date: 20080911
  Transmission Date: 20090109
  Serious: No
  Sender: FDA-Public Use
  Company Number: None

PATIENT
  Age: 72 Year
  Sex: Female
  Weight: 83.4619 kg

DRUGS (3)
  1. LYRICA [Suspect]
     Indication: NEUROPATHY PERIPHERAL
     Dosage: 75 MG ONCE NIGHTLY BY MOUTH
     Route: 048
     Dates: start: 20080728
  2. LYRICA [Suspect]
     Indication: NEUROPATHY PERIPHERAL
     Dosage: 75 MG ONCE NIGHTLY BY MOUTH
     Route: 048
     Dates: start: 20080729
  3. LYRICA [Suspect]
     Indication: NEUROPATHY PERIPHERAL
     Dosage: 75 MG ONCE NIGHTLY BY MOUTH
     Route: 048
     Dates: start: 20080730

REACTIONS (4)
  - BACK PAIN [None]
  - DIZZINESS [None]
  - MUSCULAR WEAKNESS [None]
  - PAIN [None]
